FAERS Safety Report 8292218-5 (Version None)
Quarter: 2012Q2

REPORT INFORMATION
  Report Type: 
  Country: None (occurrence: None)
  Receive Date: 20120417
  Receipt Date: 20120411
  Transmission Date: 20120825
  Serious: Yes (Other)
  Sender: FDA-Public Use
  Company Number: US-ELI_LILLY_AND_COMPANY-US201102005962

PATIENT
  Sex: Female

DRUGS (1)
  1. FORTEO [Suspect]
     Indication: OSTEOPOROSIS
     Dosage: 20 UG, DAILY (1/D)
     Dates: start: 20110126

REACTIONS (9)
  - SWELLING [None]
  - SWELLING FACE [None]
  - POOR QUALITY DRUG ADMINISTERED [None]
  - MIDDLE INSOMNIA [None]
  - BONE OPERATION [None]
  - MUSCULOSKELETAL STIFFNESS [None]
  - STRESS FRACTURE [None]
  - SLEEP DISORDER [None]
  - PAIN [None]
